FAERS Safety Report 8318516-4 (Version None)
Quarter: 2012Q2

REPORT INFORMATION
  Report Type: 
  Country: None (occurrence: None)
  Receive Date: 20120427
  Receipt Date: 20120420
  Transmission Date: 20120825
  Serious: Yes (Hospitalization, Other)
  Sender: FDA-Public Use
  Company Number: FR-GLAXOSMITHKLINE-B0586696A

PATIENT
  Sex: Male
  Weight: 95 kg

DRUGS (8)
  1. PERGOLIDE MESYLATE [Suspect]
     Indication: PARKINSONISM
     Route: 065
     Dates: start: 20020821, end: 20070101
  2. SINEMET [Concomitant]
     Indication: PARKINSONISM
     Route: 065
     Dates: start: 20020701
  3. ATHYMIL [Concomitant]
     Dosage: 20MG AT NIGHT
     Route: 065
     Dates: start: 20020701
  4. REQUIP [Suspect]
     Indication: PARKINSONISM
     Route: 048
     Dates: start: 20010901, end: 20020801
  5. L-DOPA [Concomitant]
     Route: 065
     Dates: start: 20040708
  6. MODOPAR [Concomitant]
     Indication: PARKINSONISM
     Route: 065
     Dates: start: 20010101
  7. PRAMIPEXOLE DIHYDROCHLORIDE [Suspect]
     Indication: PARKINSONISM
     Route: 065
     Dates: start: 20070101, end: 20080101
  8. MOTILIUM [Concomitant]
     Dosage: 1TAB THREE TIMES PER DAY
     Route: 065
     Dates: start: 20010915

REACTIONS (15)
  - DEPRESSED MOOD [None]
  - GENERAL PHYSICAL HEALTH DETERIORATION [None]
  - NAUSEA [None]
  - PATHOLOGICAL GAMBLING [None]
  - FOOD CRAVING [None]
  - AGGRESSION [None]
  - HYPERSEXUALITY [None]
  - SUICIDAL IDEATION [None]
  - SUICIDE ATTEMPT [None]
  - MALAISE [None]
  - ORTHOSTATIC HYPOTENSION [None]
  - VOMITING [None]
  - DEPRESSION [None]
  - SOCIAL AVOIDANT BEHAVIOUR [None]
  - PSYCHOMOTOR HYPERACTIVITY [None]
